FAERS Safety Report 5357013-5 (Version None)
Quarter: 2007Q2

REPORT INFORMATION
  Report Type: 
  Country: None (occurrence: None)
  Receive Date: 20070612
  Receipt Date: 20070612
  Transmission Date: 20071010
  Serious: No
  Sender: FDA-Public Use
  Company Number: None

PATIENT
  Sex: Female
  Weight: 53.5244 kg

DRUGS (2)
  1. EFFEXOR XR [Suspect]
     Indication: ANXIETY
     Dosage: 37.5 MG ONCE DAILY ORAL
     Route: 048
     Dates: start: 20070518
  2. EFFEXOR XR [Suspect]
     Indication: ANXIETY
     Dosage: 75 MG ONCE DAILY ORAL
     Route: 048
     Dates: start: 20070525

REACTIONS (7)
  - CRYING [None]
  - DISTURBANCE IN ATTENTION [None]
  - FEAR [None]
  - FEELING ABNORMAL [None]
  - FEELING OF DESPAIR [None]
  - INSOMNIA [None]
  - RESTLESSNESS [None]
